FAERS Safety Report 7262183-8 (Version None)
Quarter: 2011Q1

REPORT INFORMATION
  Report Type: 
  Country: None (occurrence: None)
  Receive Date: 20110119
  Receipt Date: 20110106
  Transmission Date: 20110831
  Serious: Yes (Hospitalization)
  Sender: FDA-Public Use
  Company Number: JPI-P-013407

PATIENT
  Age: 38 Year
  Sex: Male

DRUGS (3)
  1. INSULIN [Concomitant]
  2. XYREM [Suspect]
     Indication: NARCOLEPSY
     Dosage: 4.5 GM (2.25 GM,2 IN 1 D), ORAL
     Route: 048
     Dates: start: 20080701
  3. MULTIPLE UNSPECIFED MEDICATIONS [Concomitant]

REACTIONS (2)
  - DIABETES MELLITUS [None]
  - CONDITION AGGRAVATED [None]
